FAERS Safety Report 8557326-X (Version None)
Quarter: 2012Q3

REPORT INFORMATION
  Report Type: 
  Country: None (occurrence: None)
  Receive Date: 20120801
  Receipt Date: 20120725
  Transmission Date: 20120928
  Serious: Yes (Hospitalization)
  Sender: FDA-Public Use
  Company Number: US-GILEAD-2012-0058885

PATIENT
  Sex: Female

DRUGS (2)
  1. VENTAVIS [Suspect]
  2. LETAIRIS [Suspect]
     Indication: PRODUCT USED FOR UNKNOWN INDICATION
     Dosage: 10 MG, UNK
     Route: 048
     Dates: start: 20110810

REACTIONS (3)
  - LOSS OF CONSCIOUSNESS [None]
  - HYPERTENSION [None]
  - FUNGAL INFECTION [None]
